FAERS Safety Report 14692322 (Version 1)
Quarter: 2018Q1

REPORT INFORMATION
  Report Type: Spontaneous
  Country: US (occurrence: US)
  Receive Date: 20180329
  Receipt Date: 20180329
  Transmission Date: 20180509
  Serious: Yes (Other)
  Sender: FDA-Public Use
  Company Number: PHEH2018US011329

PATIENT
  Sex: Male

DRUGS (5)
  1. PREDNISONE. [Suspect]
     Active Substance: PREDNISONE
     Indication: PARANASAL SINUS DISCOMFORT
     Route: 048
  2. MEDROL [Suspect]
     Active Substance: METHYLPREDNISOLONE
     Indication: PARANASAL SINUS DISCOMFORT
     Route: 048
  3. ALBUTEROL. [Concomitant]
     Active Substance: ALBUTEROL
     Indication: PARANASAL SINUS DISCOMFORT
     Dosage: UNK UNK, TID
     Route: 045
  4. FLONASE [Concomitant]
     Active Substance: FLUTICASONE PROPIONATE
     Indication: PARANASAL SINUS DISCOMFORT
     Dosage: UNK UNK, BID
     Route: 045
  5. BUDESONIDE. [Concomitant]
     Active Substance: BUDESONIDE
     Indication: PARANASAL SINUS DISCOMFORT
     Dosage: UNK UNK, BID
     Route: 055

REACTIONS (1)
  - Blood glucose increased [Unknown]
